FAERS Safety Report 8611548-8 (Version None)
Quarter: 2012Q3

REPORT INFORMATION
  Report Type: 
  Country: None (occurrence: None)
  Receive Date: 20120822
  Receipt Date: 20120814
  Transmission Date: 20120928
  Serious: Yes (Other)
  Sender: FDA-Public Use
  Company Number: PHEH2012US005306

PATIENT
  Sex: Female
  Weight: 78.47 kg

DRUGS (11)
  1. BACLOFEN [Concomitant]
     Dosage: 10 MG, BID
  2. BENADRYL [Concomitant]
  3. TRIAZOLAM [Concomitant]
     Dosage: 0.25 MG, UNK
  4. TIZANIDINE HYDROCHLORIDE [Concomitant]
     Indication: SLEEP DISORDER
     Dosage: 0.25 MG, AT NIGHT
  5. MULTIPLE VITAMINS [Concomitant]
  6. GILENYA [Suspect]
     Indication: MULTIPLE SCLEROSIS
     Dosage: 0.5 MG, PER DAY
     Route: 048
     Dates: start: 20110501, end: 20111001
  7. VITAMIN D [Concomitant]
     Dosage: 1000 U, UNK
  8. VITAMIN D [Concomitant]
     Dosage: 4000 IU, DAILY
  9. CLARITIN [Concomitant]
     Dosage: 10 MG, UNK
  10. ZYRTEC [Concomitant]
  11. TYSABRI [Concomitant]
     Dosage: EVERY 28 DAYS

REACTIONS (3)
  - DRUG INEFFECTIVE [None]
  - CENTRAL NERVOUS SYSTEM LESION [None]
  - MULTIPLE SCLEROSIS RELAPSE [None]
